FAERS Safety Report 10079382 (Version 2)
Quarter: 2014Q2

REPORT INFORMATION
  Report Type: Report from Study
  Country: CZ (occurrence: CZ)
  Receive Date: 20140415
  Receipt Date: 20140421
  Transmission Date: 20141212
  Serious: Yes (Other)
  Sender: FDA-Public Use
  Company Number: PHHY2014CZ045541

PATIENT
  Sex: Female

DRUGS (3)
  1. ACLASTA/ZOLEDRONATE [Suspect]
     Indication: OSTEOPOROSIS
     Route: 042
  2. VITAMIN D [Concomitant]
     Indication: OSTEOPOROSIS
     Dosage: UNK UKN, UNK
  3. CALCIUM [Concomitant]
     Indication: OSTEOPOROSIS
     Dosage: UNK UKN, UNK

REACTIONS (1)
  - Forearm fracture [Unknown]
